FAERS Safety Report 15592508 (Version 1)
Quarter: 2018Q4

REPORT INFORMATION
  Report Type: Spontaneous
  Country: None (occurrence: US)
  Receive Date: 20181107
  Receipt Date: 20181107
  Transmission Date: 20190205
  Serious: No
  Sender: FDA-Public Use
  Company Number: US-MEDAC PHARMA, INC.-2058549

PATIENT
  Age: 55 Year
  Sex: Female
  Weight: 84.09 kg

DRUGS (4)
  1. FOLIC ACID. [Concomitant]
     Active Substance: FOLIC ACID
  2. SIMPONI [Concomitant]
     Active Substance: GOLIMUMAB
  3. RASUVO [Suspect]
     Active Substance: METHOTREXATE SODIUM
     Indication: RHEUMATOID ARTHRITIS
     Route: 051
     Dates: start: 201710, end: 20180930
  4. PREDNISONE. [Concomitant]
     Active Substance: PREDNISONE

REACTIONS (6)
  - Skin ulcer [Recovering/Resolving]
  - Weight increased [Unknown]
  - Pruritus generalised [Recovering/Resolving]
  - Gingival bleeding [Recovering/Resolving]
  - Alopecia [Recovering/Resolving]
  - Dyspnoea [Recovering/Resolving]
